FAERS Safety Report 7761361-9 (Version None)
Quarter: 2011Q3

REPORT INFORMATION
  Report Type: 
  Country: None (occurrence: None)
  Receive Date: 20110920
  Receipt Date: 20110914
  Transmission Date: 20111222
  Serious: No
  Sender: FDA-Public Use
  Company Number: US-PFIZER INC-2011218502

PATIENT
  Sex: Female
  Weight: 84 kg

DRUGS (7)
  1. ENALAPRIL [Concomitant]
     Dosage: 5 MG, UNK
  2. SPIRONOLACTONE [Concomitant]
     Dosage: 50 MG, UNK
  3. LEVOTHYROXINE [Concomitant]
     Dosage: 88 UG, UNK
  4. GENOTROPIN [Suspect]
     Dosage: 0.2 MG, 1X/DAY
     Route: 058
  5. PROZAC [Concomitant]
     Dosage: 10 MG, UNK
  6. COREG [Concomitant]
     Dosage: 25 MG, UNK
  7. METFORMIN [Concomitant]
     Dosage: 850 MG, UNK

REACTIONS (1)
  - SOMNOLENCE [None]
